FAERS Safety Report 17128068 (Version 1)
Quarter: 2019Q4

REPORT INFORMATION
  Report Type: Spontaneous
  Country: US (occurrence: US)
  Receive Date: 20191115
  Receipt Date: 20191115
  Transmission Date: 20200122
  Serious: Yes (Hospitalization)
  Sender: FDA-Public Use
  Company Number: None

PATIENT
  Age: 52 Year
  Sex: Female

DRUGS (4)
  1. CYTOXAN [Suspect]
     Active Substance: CYCLOPHOSPHAMIDE
     Dates: start: 20191022, end: 20191105
  2. MEDI4736 DURVALUMAB [Suspect]
     Active Substance: DURVALUMAB
     Indication: BREAST CANCER
     Dosage: ?          OTHER FREQUENCY:Q 2 WEEKS ;?
     Route: 042
     Dates: start: 2000, end: 20191008
  3. ABRAZANE ; IV, Q1WEEK [Concomitant]
  4. 12 CYCLES, [Concomitant]

REACTIONS (6)
  - Oedema [None]
  - Skin disorder [None]
  - Tenderness [None]
  - Lymphadenopathy [None]
  - Pustule [None]
  - Abscess [None]

NARRATIVE: CASE EVENT DATE: 20191110
